FAERS Safety Report 20382774 (Version 1)
Quarter: 2022Q1

REPORT INFORMATION
  Report Type: Spontaneous
  Country: US (occurrence: None)
  Receive Date: 20220127
  Receipt Date: 20220127
  Transmission Date: 20220424
  Serious: Yes (Hospitalization)
  Sender: FDA-Public Use
  Company Number: None

PATIENT
  Age: 59 Year
  Sex: Male

DRUGS (1)
  1. QUETIAPINE [Suspect]
     Active Substance: QUETIAPINE
     Indication: Transient ischaemic attack
     Dosage: FREQUENCY : AT BEDTIME;?
     Route: 048
     Dates: start: 20210725, end: 20210805

REACTIONS (5)
  - Confusional state [None]
  - Dizziness [None]
  - Sedation [None]
  - Transient ischaemic attack [None]
  - Cerebrovascular accident [None]

NARRATIVE: CASE EVENT DATE: 20210805
